FAERS Safety Report 10090286 (Version 2)
Quarter: 2014Q2

REPORT INFORMATION
  Report Type: Spontaneous
  Country: US (occurrence: US)
  Receive Date: 20140421
  Receipt Date: 20140509
  Transmission Date: 20141212
  Serious: Yes (Other)
  Sender: FDA-Public Use
  Company Number: US-BAYER-2014-056241

PATIENT
  Age: 51 Year
  Sex: Female

DRUGS (5)
  1. OCELLA [Suspect]
  2. METOPROLOL [Concomitant]
     Dosage: 25 MG, UNK
     Route: 048
     Dates: start: 20110919
  3. SPIRONOLACTONE AND HYDROCHLOROTHIAZIDE [Concomitant]
     Dosage: 25-25 MG
     Route: 048
     Dates: start: 20111027
  4. CITALOPRAM [Concomitant]
     Dosage: 20 MG, UNK
     Route: 048
     Dates: start: 20111115
  5. AZITHROMYCIN [Concomitant]
     Dosage: 250 MG, UNK
     Route: 048
     Dates: start: 20111115

REACTIONS (2)
  - Cerebral infarction [None]
  - Lacunar infarction [None]
